FAERS Safety Report 9656104 (Version 2)
Quarter: 2013Q4

REPORT INFORMATION
  Report Type: Report from Study
  Country: IL (occurrence: IL)
  Receive Date: 20131030
  Receipt Date: 20131030
  Transmission Date: 20140711
  Serious: Yes (Death, Hospitalization)
  Sender: FDA-Public Use
  Company Number: IL-B.I. PHARMACEUTICALS,INC./RIDGEFIELD-2012-AP-00983AP

PATIENT
  Age: 57 Year
  Sex: Male
  Weight: 48 kg

DRUGS (6)
  1. BIBW 2992 [Suspect]
     Indication: SQUAMOUS CELL CARCINOMA OF HEAD AND NECK
     Route: 048
     Dates: start: 20120923, end: 20121030
  2. OXYCOD [Concomitant]
     Indication: PAIN
     Route: 048
     Dates: start: 20120912
  3. OPTALGIN [Concomitant]
     Indication: PAIN
     Route: 048
     Dates: start: 201208
  4. ADEX [Concomitant]
     Indication: PAIN
     Route: 048
     Dates: start: 201208
  5. PERCOSET [Concomitant]
     Indication: PAIN
     Route: 048
     Dates: start: 20121028
  6. NUROFEN [Concomitant]
     Indication: PAIN
     Route: 048
     Dates: start: 20121026

REACTIONS (4)
  - Malignant neoplasm progression [Fatal]
  - General physical health deterioration [Recovered/Resolved]
  - Weight decreased [Not Recovered/Not Resolved]
  - Decreased appetite [Not Recovered/Not Resolved]
